FAERS Safety Report 21363393 (Version 1)
Quarter: 2022Q3

REPORT INFORMATION
  Report Type: Spontaneous
  Country: US (occurrence: US)
  Receive Date: 20220922
  Receipt Date: 20220922
  Transmission Date: 20221027
  Serious: Yes (Other)
  Sender: FDA-Public Use
  Company Number: US-ADVANZ PHARMA-202209006139

PATIENT

DRUGS (3)
  1. ZONISAMIDE [Suspect]
     Active Substance: ZONISAMIDE
     Indication: Migraine
     Dosage: 3 DOSAGE FORM, WEEKLY,3 PILLS PER WEEK ORALLY
     Route: 048
     Dates: start: 20220808, end: 20220908
  2. Propanolol Maxall [Concomitant]
     Indication: Migraine
     Dosage: UNK
  3. PROLIA [Concomitant]
     Active Substance: DENOSUMAB
     Indication: Osteoporosis

REACTIONS (2)
  - Dysgeusia [Not Recovered/Not Resolved]
  - Dysgeusia [Not Recovered/Not Resolved]
